FAERS Safety Report 9190080 (Version 1)
Quarter: 2013Q1

REPORT INFORMATION
  Report Type: Spontaneous
  Country: US (occurrence: None)
  Receive Date: 20130325
  Receipt Date: 20130325
  Transmission Date: 20140127
  Serious: Yes (Life-Threatening, Other)
  Sender: FDA-Public Use
  Company Number: None

PATIENT
  Age: 67 Year
  Sex: Female

DRUGS (1)
  1. XELODA [Suspect]
     Dosage: 3 TABS BID 7 DAYS. 7 DAYS OFF
     Route: 048
     Dates: start: 20121119, end: 20130322

REACTIONS (2)
  - Renal disorder [None]
  - Blood urine present [None]
